FAERS Safety Report 25115592 (Version 3)
Quarter: 2025Q2

REPORT INFORMATION
  Report Type: Report from Study
  Country: CA (occurrence: CA)
  Receive Date: 20250325
  Receipt Date: 20250616
  Transmission Date: 20250717
  Serious: Yes (Other)
  Sender: AMGEN
  Company Number: CA-AMGEN-CANSL2025048396

PATIENT
  Age: 42 Year
  Sex: Female

DRUGS (6)
  1. AVSOLA [Suspect]
     Active Substance: INFLIXIMAB-AXXQ
     Indication: Crohn^s disease
     Route: 065
     Dates: start: 20241114
  2. AVSOLA [Suspect]
     Active Substance: INFLIXIMAB-AXXQ
     Route: 065
  3. AVSOLA [Suspect]
     Active Substance: INFLIXIMAB-AXXQ
     Route: 065
  4. AVSOLA [Suspect]
     Active Substance: INFLIXIMAB-AXXQ
     Route: 065
  5. AVSOLA [Suspect]
     Active Substance: INFLIXIMAB-AXXQ
     Dosage: 5 MILLIGRAM/KILOGRAM, Q8WK
     Route: 065
  6. PREDNISONE [Concomitant]
     Active Substance: PREDNISONE
     Route: 065

REACTIONS (6)
  - Diarrhoea haemorrhagic [Not Recovered/Not Resolved]
  - Crohn^s disease [Unknown]
  - Osteoarthritis [Not Recovered/Not Resolved]
  - Illness [Unknown]
  - Product dose omission issue [Unknown]
  - Therapeutic product effect decreased [Unknown]

NARRATIVE: CASE EVENT DATE: 20250314
